FAERS Safety Report 12804022 (Version 3)
Quarter: 2016Q4

REPORT INFORMATION
  Report Type: Report from Study
  Country: US (occurrence: US)
  Receive Date: 20161003
  Receipt Date: 20161018
  Transmission Date: 20170207
  Serious: Yes (Other)
  Sender: FDA-Public Use
  Company Number: US-TEVA-697094USA

PATIENT
  Age: 56 Year
  Sex: Female

DRUGS (1)
  1. COPAXONE [Suspect]
     Active Substance: GLATIRAMER ACETATE
     Indication: MULTIPLE SCLEROSIS
     Route: 058
     Dates: start: 20160706, end: 20160926

REACTIONS (11)
  - Hypopnoea [Recovered/Resolved]
  - Flushing [Unknown]
  - Haemorrhage [Unknown]
  - Dyspnoea [Recovered/Resolved]
  - Diarrhoea [Unknown]
  - Diabetes mellitus [Unknown]
  - Dehydration [Unknown]
  - Skin discolouration [Unknown]
  - Chest discomfort [Unknown]
  - Vomiting [Unknown]
  - Hypertension [Recovered/Resolved]

NARRATIVE: CASE EVENT DATE: 20160726
